FAERS Safety Report 19890649 (Version 1)
Quarter: 2021Q3

REPORT INFORMATION
  Report Type: Spontaneous
  Country: NL (occurrence: NL)
  Receive Date: 20210928
  Receipt Date: 20210928
  Transmission Date: 20211014
  Serious: Yes (Other)
  Sender: FDA-Public Use
  Company Number: NL-SA-2021SA308075

PATIENT
  Age: 71 Year
  Sex: Male

DRUGS (2)
  1. DOCETAXEL. [Suspect]
     Active Substance: DOCETAXEL
     Indication: LUNG SQUAMOUS CELL CARCINOMA STAGE III
     Dosage: UNK
  2. CISPLATIN. [Suspect]
     Active Substance: CISPLATIN
     Indication: LUNG SQUAMOUS CELL CARCINOMA STAGE III
     Dosage: UNK

REACTIONS (14)
  - Vision blurred [Recovered/Resolved]
  - Ataxia [Recovered/Resolved]
  - Unresponsive to stimuli [Recovered/Resolved]
  - Headache [Recovered/Resolved]
  - Aphasia [Recovered/Resolved]
  - Posterior reversible encephalopathy syndrome [Recovered/Resolved]
  - Gait disturbance [Recovered/Resolved]
  - Vasogenic cerebral oedema [Recovered/Resolved]
  - Dizziness [Recovered/Resolved]
  - Generalised tonic-clonic seizure [Recovered/Resolved]
  - Alien limb syndrome [Recovered/Resolved]
  - Toxic leukoencephalopathy [Recovered/Resolved]
  - Cognitive disorder [Recovered/Resolved]
  - Upper motor neurone lesion [Recovered/Resolved]
